FAERS Safety Report 15316469 (Version 2)
Quarter: 2018Q3

REPORT INFORMATION
  Report Type: Report from Study
  Country: US (occurrence: US)
  Receive Date: 20180824
  Receipt Date: 20180907
  Transmission Date: 20181010
  Serious: Yes (Hospitalization)
  Sender: FDA-Public Use
  Company Number: US-R-PHARM US LLC-2018RPM00046

PATIENT
  Age: 72 Year
  Sex: Female
  Weight: 61.1 kg

DRUGS (1)
  1. IXEMPRA [Suspect]
     Active Substance: IXABEPILONE
     Indication: OVARIAN CANCER RECURRENT
     Dosage: 12 MG/M2, DAY 1, DAY 8, AND DAY 15
     Route: 042
     Dates: start: 20180504, end: 20180803

REACTIONS (5)
  - Blood creatine phosphokinase increased [Recovering/Resolving]
  - Fatigue [Recovering/Resolving]
  - Asthenia [Recovering/Resolving]
  - Off label use [Recovered/Resolved]
  - Fall [Recovering/Resolving]

NARRATIVE: CASE EVENT DATE: 20180508
